FAERS Safety Report 4709371-X (Version None)
Quarter: 2005Q3

REPORT INFORMATION
  Report Type: 
  Country: None (occurrence: None)
  Receive Date: 20050708
  Receipt Date: 20050512
  Transmission Date: 20060218
  Serious: Yes (Hospitalization)
  Sender: FDA-Public Use
  Company Number: US-BRISTOL-MYERS SQUIBB COMPANY-12966271

PATIENT
  Age: 59 Year
  Sex: Female
  Weight: 69 kg

DRUGS (9)
  1. ERBITUX [Suspect]
     Indication: COLON CANCER METASTATIC
     Dosage: PRODUCT STRENGTH 425 MG. PRODUCT ONGOING AS OF 27-JUN-05 (425 MG).
     Route: 042
     Dates: start: 20050411, end: 20050411
  2. ASPIRIN [Concomitant]
  3. EXCEDRIN (MIGRAINE) [Concomitant]
  4. CPT-11 [Concomitant]
  5. LEUCOVORIN [Concomitant]
  6. FLUOROURACIL [Concomitant]
  7. ANEMET [Concomitant]
     Indication: PREMEDICATION
     Route: 042
  8. LORAZEPAM [Concomitant]
     Indication: PREMEDICATION
  9. PREVACID [Concomitant]
     Indication: PREMEDICATION

REACTIONS (3)
  - DYSPNOEA [None]
  - PNEUMONIA [None]
  - PULMONARY EMBOLISM [None]
